FAERS Safety Report 15879259 (Version 3)
Quarter: 2019Q3

REPORT INFORMATION
  Report Type: Spontaneous
  Country: PT (occurrence: PT)
  Receive Date: 20190128
  Receipt Date: 20190708
  Transmission Date: 20191004
  Serious: Yes (Hospitalization)
  Sender: FDA-Public Use
  Company Number: PT-MYLANLABS-2019M1007413

PATIENT
  Age: 73 Year
  Sex: Female

DRUGS (1)
  1. OLMESARTAN MEDOXOMIL. [Suspect]
     Active Substance: OLMESARTAN MEDOXOMIL
     Indication: HYPERTENSION
     Dosage: UNK
     Route: 048

REACTIONS (14)
  - Erosive duodenitis [Recovered/Resolved]
  - Pallor [Recovered/Resolved]
  - Dehydration [Recovered/Resolved]
  - Abdominal discomfort [Recovered/Resolved]
  - Diarrhoea [Recovered/Resolved]
  - Acidosis [Recovered/Resolved]
  - Intestinal villi atrophy [Recovered/Resolved]
  - Sprue-like enteropathy [Recovered/Resolved]
  - Acute kidney injury [Recovered/Resolved]
  - Lymphocytosis [Recovered/Resolved]
  - Lymphocytic infiltration [Recovered/Resolved]
  - Anaemia [Recovered/Resolved]
  - Vomiting [Recovered/Resolved]
  - Asthenia [Recovered/Resolved]
